FAERS Safety Report 19507265 (Version 2)
Quarter: 2021Q3

REPORT INFORMATION
  Report Type: Spontaneous
  Country: NL (occurrence: NL)
  Receive Date: 20210708
  Receipt Date: 20210716
  Transmission Date: 20211014
  Serious: Yes (Death)
  Sender: FDA-Public Use
  Company Number: NL-TEVA-2021-NL-1929400

PATIENT
  Age: 65 Year
  Sex: Female
  Weight: 58 kg

DRUGS (6)
  1. FINGOLIMOD CAPSULE 0,5MG / BRAND NAME NOT SPECIFIED [Suspect]
     Active Substance: FINGOLIMOD
     Dosage: THERAPY END DATE :ASKU
     Dates: start: 20131001
  2. COLECALCIFEROL CAPSULE   5600IE / BRAND NAME NOT SPECIFIED [Concomitant]
     Active Substance: CHOLECALCIFEROL
     Dosage: 5600 UNITSTHERAPY START DATE:THERAPY END DATE :ASKU
  3. SIMVASTATINE TABLET FO 10MG / BRAND NAME NOT SPECIFIED [Concomitant]
     Active Substance: SIMVASTATIN
     Dosage: 10 MG (MILLIGRAMS)THERAPY START DATE :THERAPY END DATE:ASKU
  4. PRIMIDON CAPSULE 62,5MG / BRAND NAME NOT SPECIFIED [Concomitant]
     Dosage: 250 MGTHERAPY START DATE :THERAPY END DATE :ASKU
  5. PROPRANOLOL CAPSULE MGA  80MG / BRAND NAME NOT SPECIFIED [Concomitant]
     Dosage: 80 MG (MILLIGRAM)THERAPY START DATE :THERAPY END DATE :ASKU
  6. OXYBUTYNINE STROOP 1MG/ML / DRIDASE SIROOP 1MG/ML [Concomitant]
     Dosage: THERAPY START DATE :THERAPY END DATE :ASKU

REACTIONS (3)
  - Headache [Unknown]
  - Dyspnoea [Recovered/Resolved]
  - Cardiac death [Fatal]

NARRATIVE: CASE EVENT DATE: 20210616
